FAERS Safety Report 18053175 (Version 2)
Quarter: 2020Q4

REPORT INFORMATION
  Report Type: Report from Study
  Country: BR (occurrence: BR)
  Receive Date: 20200722
  Receipt Date: 20201006
  Transmission Date: 20210113
  Serious: Yes (Death, Hospitalization)
  Sender: FDA-Public Use
  Company Number: NVSC2020BR204879

PATIENT
  Sex: Male

DRUGS (1)
  1. COSENTYX [Suspect]
     Active Substance: SECUKINUMAB
     Indication: PSORIATIC ARTHROPATHY
     Dosage: 150 MG, UNKNOWN
     Route: 065
     Dates: start: 201903, end: 20200630

REACTIONS (7)
  - COVID-19 [Fatal]
  - Microangiopathy [Fatal]
  - Psoriatic arthropathy [Fatal]
  - Inflammation [Fatal]
  - Multiple organ dysfunction syndrome [Fatal]
  - Diabetes mellitus [Fatal]
  - Malaise [Fatal]
